FAERS Safety Report 18762310 (Version 1)
Quarter: 2021Q1

REPORT INFORMATION
  Report Type: Spontaneous
  Country: CN (occurrence: CN)
  Receive Date: 20210120
  Receipt Date: 20210120
  Transmission Date: 20210419
  Serious: Yes (Other)
  Sender: FDA-Public Use
  Company Number: CN-BAYER-2021-023593

PATIENT
  Age: 34 Year
  Sex: Female

DRUGS (1)
  1. YASMIN [Suspect]
     Active Substance: DROSPIRENONE\ETHINYL ESTRADIOL
     Dosage: UNK
     Route: 048
     Dates: start: 202012, end: 20210111

REACTIONS (2)
  - Pancreatitis [Recovering/Resolving]
  - Abnormal withdrawal bleeding [Not Recovered/Not Resolved]

NARRATIVE: CASE EVENT DATE: 202101
